FAERS Safety Report 8378613-4 (Version None)
Quarter: 2012Q2

REPORT INFORMATION
  Report Type: 
  Country: None (occurrence: None)
  Receive Date: 20120522
  Receipt Date: 20110414
  Transmission Date: 20120825
  Serious: No
  Sender: FDA-Public Use
  Company Number: US-ASTRAZENECA-2011SE21877

PATIENT
  Sex: Female
  Weight: 60 kg

DRUGS (4)
  1. PLAVIX [Interacting]
     Indication: CEREBROVASCULAR ACCIDENT
  2. ZANTAC [Concomitant]
  3. CITRACAL [Concomitant]
  4. PRILOSEC [Suspect]
     Indication: GASTRIC DISORDER
     Route: 048
     Dates: start: 20101101

REACTIONS (2)
  - HEADACHE [None]
  - DRUG INTERACTION [None]
